FAERS Safety Report 9948249 (Version 2)
Quarter: 2014Q1

REPORT INFORMATION
  Report Type: Spontaneous
  Country: US (occurrence: US)
  Receive Date: 20140303
  Receipt Date: 20140303
  Transmission Date: 20141002
  Serious: Yes (Other)
  Sender: FDA-Public Use
  Company Number: US-ABBVIE-13P-163-1040138-00

PATIENT
  Age: 40 Year
  Sex: Female
  Weight: 53.57 kg

DRUGS (7)
  1. HUMIRA [Suspect]
     Indication: PSORIASIS
     Dosage: UNKNOWN
     Route: 058
     Dates: start: 2008
  2. COLOESTRIN [Concomitant]
     Indication: PRODUCT USED FOR UNKNOWN INDICATION
  3. LOSARTAN HYDROCLORORATHIAZDE [Concomitant]
     Indication: PRODUCT USED FOR UNKNOWN INDICATION
  4. NAPELAN  CR [Concomitant]
     Indication: PRODUCT USED FOR UNKNOWN INDICATION
  5. OMNARIS [Concomitant]
     Indication: PRODUCT USED FOR UNKNOWN INDICATION
  6. TEMZEPAM [Concomitant]
     Indication: PRODUCT USED FOR UNKNOWN INDICATION
  7. TREZI [Concomitant]
     Indication: PRODUCT USED FOR UNKNOWN INDICATION

REACTIONS (1)
  - Breast cancer stage III [Unknown]
